FAERS Safety Report 6365162-8 (Version None)
Quarter: 2009Q3

REPORT INFORMATION
  Report Type: 
  Country: None (occurrence: None)
  Receive Date: 20090919
  Receipt Date: 20090809
  Transmission Date: 20100115
  Serious: No
  Sender: FDA-Public Use
  Company Number: US-ABBOTT-09P-163-0590005-00

PATIENT
  Sex: Female

DRUGS (4)
  1. HUMIRA [Suspect]
     Indication: ANKYLOSING SPONDYLITIS
     Dates: start: 20090807
  2. MEDICATION FOR THYROID PROBLEMS [Concomitant]
     Indication: THYROID DISORDER
  3. CHOLESTEROL MEDICATION [Concomitant]
     Indication: BLOOD CHOLESTEROL
  4. MUSCLE RELAXER [Concomitant]
     Indication: MUSCLE RELAXANT THERAPY

REACTIONS (1)
  - HEADACHE [None]
